FAERS Safety Report 14235739 (Version 1)
Quarter: 2017Q4

REPORT INFORMATION
  Report Type: Spontaneous
  Country: FR (occurrence: FR)
  Receive Date: 20171129
  Receipt Date: 20171129
  Transmission Date: 20180321
  Serious: Yes (Disabling)
  Sender: FDA-Public Use
  Company Number: FR-MERCK KGAA-2036220

PATIENT
  Age: 50 Year
  Sex: Female

DRUGS (3)
  1. NOVOTHYROX [Suspect]
     Active Substance: LEVOTHYROXINE SODIUM
     Indication: THYROIDECTOMY
     Route: 048
     Dates: start: 20170505
  2. LEVOTHYROX [Suspect]
     Active Substance: LEVOTHYROXINE
     Dates: start: 201705
  3. LEVOTHYROX [Suspect]
     Active Substance: LEVOTHYROXINE
     Dates: start: 20170720, end: 20170925

REACTIONS (13)
  - Vertigo [Recovered/Resolved]
  - Asthenia [Recovered/Resolved]
  - Weight increased [Recovered/Resolved]
  - Diarrhoea [Recovered/Resolved]
  - Disturbance in attention [Not Recovered/Not Resolved]
  - Depression [Not Recovered/Not Resolved]
  - Alopecia [Recovered/Resolved]
  - Abdominal pain [Recovered/Resolved]
  - Vision blurred [Recovered/Resolved]
  - Headache [Recovered/Resolved]
  - Amnesia [Not Recovered/Not Resolved]
  - Paraesthesia [Recovered/Resolved]
  - Muscle spasms [Recovered/Resolved]

NARRATIVE: CASE EVENT DATE: 201705
